FAERS Safety Report 21490339 (Version 2)
Quarter: 2022Q4

REPORT INFORMATION
  Report Type: Report from Study
  Country: AR (occurrence: AR)
  Receive Date: 20221021
  Receipt Date: 20221221
  Transmission Date: 20230112
  Serious: Yes (Hospitalization, Other)
  Sender: FDA-Public Use
  Company Number: AR-NOVARTISPH-NVSC2022AR122122

PATIENT
  Age: 40 Year
  Sex: Female

DRUGS (6)
  1. COSENTYX [Suspect]
     Active Substance: SECUKINUMAB
     Indication: Psoriasis
     Dosage: 150 MG, (150MG X2)
     Route: 065
     Dates: start: 20220422
  2. COSENTYX [Suspect]
     Active Substance: SECUKINUMAB
     Indication: Psoriatic arthropathy
     Dosage: UNK (2ND APPLICATION)
     Route: 065
     Dates: start: 20220429
  3. COSENTYX [Suspect]
     Active Substance: SECUKINUMAB
     Dosage: UNK (3RD APPLICATION)
     Route: 065
     Dates: start: 20220506
  4. COSENTYX [Suspect]
     Active Substance: SECUKINUMAB
     Dosage: UNK (4TH APPLICATION)
     Route: 065
     Dates: start: 20220513
  5. COSENTYX [Suspect]
     Active Substance: SECUKINUMAB
     Dosage: 300 MG, Q2W (ONCE EVERY 2 WEEKS)
     Route: 058
  6. COSENTYX [Suspect]
     Active Substance: SECUKINUMAB
     Dosage: 300 MG, QMO
     Route: 058

REACTIONS (6)
  - Blindness [Unknown]
  - Bronchial disorder [Unknown]
  - Condition aggravated [Not Recovered/Not Resolved]
  - Scab [Not Recovered/Not Resolved]
  - Osteoarthritis [Not Recovered/Not Resolved]
  - Drug ineffective [Unknown]

NARRATIVE: CASE EVENT DATE: 20220901
